FAERS Safety Report 4679229-3 (Version None)
Quarter: 2005Q2

REPORT INFORMATION
  Report Type: 
  Country: None (occurrence: None)
  Receive Date: 20050311
  Receipt Date: 20050311
  Transmission Date: 20051028
  Serious: Yes (Other)
  Sender: FDA-Public Use
  Company Number: None

PATIENT
  Age: 43 Year
  Sex: Male
  Weight: 146.5118 kg

DRUGS (2)
  1. TEGRETOL GENERIC [Suspect]
     Indication: CONVULSION
  2. DILANTIN GENERIC [Suspect]
     Dosage: SEIZURE DISORDER

REACTIONS (3)
  - ABDOMINAL PAIN UPPER [None]
  - NAUSEA [None]
  - STOMATITIS [None]
